FAERS Safety Report 12812350 (Version 1)
Quarter: 2016Q4

REPORT INFORMATION
  Report Type: Report from Study
  Country: US (occurrence: US)
  Receive Date: 20161005
  Receipt Date: 20161005
  Transmission Date: 20170207
  Serious: No
  Sender: FDA-Public Use
  Company Number: US-AMGEN-USASP2016107858

PATIENT
  Age: 92 Year
  Sex: Female

DRUGS (3)
  1. VITAMIN D3 [Concomitant]
     Active Substance: CHOLECALCIFEROL
     Dosage: 2000 IU, UNK
  2. TUMS [Concomitant]
     Active Substance: CALCIUM CARBONATE
     Dosage: 750 MG, UNK
  3. PROLIA [Suspect]
     Active Substance: DENOSUMAB
     Indication: OSTEOPOROSIS POSTMENOPAUSAL
     Dosage: UNK UNK, Q6MO
     Route: 065
     Dates: start: 20160318

REACTIONS (12)
  - Rash pustular [Recovered/Resolved]
  - Abdominal discomfort [Unknown]
  - Thermal burn [Recovering/Resolving]
  - Erythema [Unknown]
  - Bone pain [Unknown]
  - Cystitis [Recovered/Resolved]
  - Infection [Recovered/Resolved]
  - Body height decreased [Not Recovered/Not Resolved]
  - Weight decreased [Unknown]
  - Skin abrasion [Recovered/Resolved]
  - Abdominal pain [Unknown]
  - Arthralgia [Recovered/Resolved]

NARRATIVE: CASE EVENT DATE: 2016
